FAERS Safety Report 5471545-0 (Version None)
Quarter: 2007Q3

REPORT INFORMATION
  Report Type: 
  Country: None (occurrence: None)
  Receive Date: 20070928
  Receipt Date: 20070104
  Transmission Date: 20080115
  Serious: No
  Sender: FDA-Public Use
  Company Number: US-BRISTOL-MYERS SQUIBB COMPANY-13631502

PATIENT
  Age: 24 Year
  Sex: Female
  Weight: 77 kg

DRUGS (4)
  1. DEFINITY [Suspect]
     Indication: ECHOCARDIOGRAM
     Dates: start: 20070103, end: 20070103
  2. CARDIZEM [Concomitant]
  3. RESTASIS [Concomitant]
  4. ALBUTEROL [Concomitant]

REACTIONS (3)
  - FLUSHING [None]
  - HYPERTENSION [None]
  - TACHYCARDIA [None]
